FAERS Safety Report 8954518 (Version 2)
Quarter: 2012Q4

REPORT INFORMATION
  Report Type: Report from Study
  Country: CA (occurrence: CA)
  Receive Date: 20121207
  Receipt Date: 20121212
  Transmission Date: 20130627
  Serious: Yes (Other)
  Sender: FDA-Public Use
  Company Number: CA-ABBOTT-12P-028-1018076-00

PATIENT
  Sex: Female

DRUGS (10)
  1. HUMIRA [Suspect]
     Indication: ANKYLOSING SPONDYLITIS
     Dates: start: 20090629, end: 20121008
  2. WELLBUTRIN [Concomitant]
     Indication: DEPRESSION
     Dates: start: 2008
  3. WELLBUTRIN [Concomitant]
     Indication: ANXIETY
  4. WELLBUTRIN [Concomitant]
     Indication: INSOMNIA
  5. EFFEXOR [Concomitant]
     Indication: DEPRESSION
     Route: 048
     Dates: start: 2008
  6. EFFEXOR [Concomitant]
     Indication: ANXIETY
  7. EFFEXOR [Concomitant]
     Indication: INSOMNIA
  8. CLONAZEPAN [Concomitant]
     Indication: DEPRESSION
     Route: 048
     Dates: start: 2008
  9. CLONAZEPAN [Concomitant]
     Indication: ANXIETY
  10. CLONAZEPAN [Concomitant]
     Indication: INSOMNIA

REACTIONS (6)
  - Varicose vein [Not Recovered/Not Resolved]
  - Postoperative wound complication [Not Recovered/Not Resolved]
  - Incisional drainage [Not Recovered/Not Resolved]
  - Breast mass [Not Recovered/Not Resolved]
  - Pain in extremity [Not Recovered/Not Resolved]
  - Groin pain [Not Recovered/Not Resolved]
